FAERS Safety Report 18683924 (Version 3)
Quarter: 2022Q1

REPORT INFORMATION
  Report Type: Spontaneous
  Country: DE (occurrence: DE)
  Receive Date: 20201230
  Receipt Date: 20220309
  Transmission Date: 20220424
  Serious: Yes (Hospitalization)
  Sender: FDA-Public Use
  Company Number: None

PATIENT
  Age: 66 Year
  Sex: Male
  Weight: 68 kg

DRUGS (34)
  1. METOPROLOL [Suspect]
     Active Substance: METOPROLOL
     Dosage: BID (1-0-1-0)
     Route: 048
  2. ASPIRIN [Suspect]
     Active Substance: ASPIRIN
     Dosage: 100 MG QD (1-0-0-0)
     Route: 048
  3. METFORMIN [Suspect]
     Active Substance: METFORMIN HYDROCHLORIDE
     Dosage: 1000 MG, QD (1-0-0-0)
     Route: 048
  4. RAMIPRIL [Suspect]
     Active Substance: RAMIPRIL
     Dosage: 5 MG BID (1-0-1-0)
     Route: 048
  5. AMLODIPINE BESYLATE [Suspect]
     Active Substance: AMLODIPINE BESYLATE
     Dosage: 5 MG, (1-0-0-0)
  6. CLOPIDOGREL [Suspect]
     Active Substance: CLOPIDOGREL BISULFATE
     Dosage: 75 MG, (1-0-0-0)
  7. BUPRENORPHINE [Suspect]
     Active Substance: BUPRENORPHINE
     Dosage: 1 DF,EVERY SECOND DAY OF WEEK
     Route: 065
  8. HYDROCHLOROTHIAZIDE\TRIAMTERENE [Suspect]
     Active Substance: HYDROCHLOROTHIAZIDE\TRIAMTERENE
     Dosage: 1 DF, OD (1-0-0-0)
     Route: 065
  9. PANTOPRAZOLE [Suspect]
     Active Substance: PANTOPRAZOLE
     Dosage: 40 MG, (1-0-0-0)
     Route: 065
  10. DULOXETINE HYDROCHLORIDE [Suspect]
     Active Substance: DULOXETINE HYDROCHLORIDE
     Dosage: 60 MG, OD (1-0-0-0)
     Route: 065
     Dates: start: 201710, end: 201805
  11. IBUPROFEN [Suspect]
     Active Substance: IBUPROFEN
     Dosage: TID
     Route: 065
  12. ZOLPIDEM [Suspect]
     Active Substance: ZOLPIDEM TARTRATE
     Dosage: 5 MG, QD
     Route: 048
  13. AMITRIPTYLINE [Suspect]
     Active Substance: AMITRIPTYLINE
     Dosage: 25 MG, HS (AT NIGHT)
     Route: 065
  14. EZETIMIBE [Suspect]
     Active Substance: EZETIMIBE
     Dosage: 10 MG, QD (1-0-0-0)
     Route: 065
  15. SIMVASTATIN [Suspect]
     Active Substance: SIMVASTATIN
     Dosage: 40 MG, QD (1-0-0-0)
     Route: 065
  16. METAMIZOLE MAGNESIUM [Suspect]
     Active Substance: METAMIZOLE MAGNESIUM
     Dosage: 4000 MG, QD (1000 MG, QID (500 MG (2-2-2-2))
     Route: 065
  17. ASPIRIN [Concomitant]
     Active Substance: ASPIRIN
     Dosage: 100 MG, OD (1-0-0-0)
     Route: 065
  18. TAMSULOSIN [Concomitant]
     Active Substance: TAMSULOSIN
     Dosage: 0.4 MG, OD
     Route: 065
  19. RAMIPRIL [Concomitant]
     Active Substance: RAMIPRIL
     Dosage: 10 MG, QD
     Route: 065
  20. BUPRENORPHINE [Concomitant]
     Active Substance: BUPRENORPHINE
     Dosage: 1 DF, UNK (TWICE WEEKLY)
     Route: 048
  21. NOVALGIN                           /00169801/ [Concomitant]
     Dosage: 1 G (4 TO 5 TIMES)
     Route: 065
  22. NOVALGIN                           /00169801/ [Concomitant]
     Dosage: (8 TIME DAILY)
     Route: 065
  23. NOVALGIN                           /00169801/ [Concomitant]
     Route: 065
  24. ZOLPIDEM [Concomitant]
     Active Substance: ZOLPIDEM TARTRATE
     Dosage: 10 MG, HS (AT START OF NIGHT)
     Route: 065
  25. MCP METOCLOPRAMIDE [Concomitant]
     Dosage: TID
     Route: 065
  26. TERBINAFINE [Concomitant]
     Active Substance: TERBINAFINE
     Dosage: 450 MG, QD
     Route: 065
  27. ISMN GENERICON [Concomitant]
     Route: 048
  28. patoprazol [Concomitant]
     Dosage: 40 MG, BID
     Route: 065
  29. RAMIPRIL [Concomitant]
     Active Substance: RAMIPRIL
     Route: 065
  30. BENZTHIAZIDE\TRIAMTERENE [Concomitant]
     Active Substance: BENZTHIAZIDE\TRIAMTERENE
     Dosage: 1 DF, QD
     Route: 065
  31. VALSARTAN [Concomitant]
     Active Substance: VALSARTAN
     Route: 065
  32. PANTOZOL                           /01263204/ [Concomitant]
     Dosage: 40 MG, OD (1-0-0-0)
     Route: 065
  33. TRAMADOL [Concomitant]
     Active Substance: TRAMADOL
     Dosage: 50 MG, UNK
     Route: 065
     Dates: start: 20180213
  34. METOHEXAL                          /00376902/ [Concomitant]
     Dosage: BID (1-0-1-0)
     Route: 065

REACTIONS (5)
  - Eczema [Recovered/Resolved]
  - Impetigo [Recovered/Resolved]
  - Pruritus [Unknown]
  - Seborrhoeic dermatitis [Unknown]
  - Product substitution issue [Unknown]

NARRATIVE: CASE EVENT DATE: 20171001
